FAERS Safety Report 5736223-9 (Version None)
Quarter: 2008Q2

REPORT INFORMATION
  Report Type: 
  Country: None (occurrence: None)
  Receive Date: 20080513
  Receipt Date: 20080508
  Transmission Date: 20081010
  Serious: Yes (Disabling)
  Sender: FDA-Public Use
  Company Number: US-MERCK-0805USA01466

PATIENT
  Age: 42 Year
  Sex: Female
  Weight: 82 kg

DRUGS (1)
  1. SINGULAIR [Suspect]
     Indication: HYPERSENSITIVITY
     Route: 048

REACTIONS (1)
  - VULVOVAGINAL MYCOTIC INFECTION [None]
